FAERS Safety Report 17524356 (Version 1)
Quarter: 2020Q1

REPORT INFORMATION
  Report Type: Spontaneous
  Country: US (occurrence: US)
  Receive Date: 20200311
  Receipt Date: 20200311
  Transmission Date: 20200409
  Serious: No
  Sender: FDA-Public Use
  Company Number: US-JNJFOC-20200304245

PATIENT
  Sex: Female
  Weight: 74.91 kg

DRUGS (1)
  1. MENS ROGAINE EXTRA STRENGTH [Suspect]
     Active Substance: MINOXIDIL
     Indication: ALOPECIA
     Dosage: FOAM IN THE MORNING
     Route: 065

REACTIONS (3)
  - Product use issue [Unknown]
  - Product container issue [Unknown]
  - Intentional product misuse [Unknown]
